FAERS Safety Report 8113010-8 (Version None)
Quarter: 2012Q1

REPORT INFORMATION
  Report Type: 
  Country: None (occurrence: None)
  Receive Date: 20120203
  Receipt Date: 20120123
  Transmission Date: 20120608
  Serious: Yes (Hospitalization, Other)
  Sender: FDA-Public Use
  Company Number: US-ELI_LILLY_AND_COMPANY-US201101002726

PATIENT
  Sex: Female
  Weight: 41.723 kg

DRUGS (8)
  1. LASIX [Concomitant]
     Dosage: 40 MG, BID
     Route: 065
  2. ANTIBIOTICS [Concomitant]
     Dosage: UNK, UNKNOWN
     Route: 065
  3. FORTEO [Suspect]
     Dosage: 20 UG, QD
     Route: 065
     Dates: end: 20120109
  4. POTASSIUM [Concomitant]
     Dosage: UNK, UNKNOWN
     Route: 065
  5. FORTEO [Suspect]
     Indication: OSTEOPOROSIS
     Dosage: 20 UG, QD
     Route: 065
     Dates: end: 20110106
  6. NORVASC [Concomitant]
     Dosage: UNK, UNKNOWN
     Route: 065
  7. CARDIAC THERAPY [Concomitant]
     Dosage: UNK, UNKNOWN
     Route: 065
  8. ALLERGY MEDICATION [Concomitant]
     Dosage: UNK, UNKNOWN
     Route: 065

REACTIONS (17)
  - HAEMATOCHEZIA [None]
  - LABILE BLOOD PRESSURE [None]
  - SKIN ULCER [None]
  - OEDEMA PERIPHERAL [None]
  - HEAD INJURY [None]
  - SCAR [None]
  - FALL [None]
  - LOSS OF CONSCIOUSNESS [None]
  - ARTERIAL DISORDER [None]
  - WOUND SECRETION [None]
  - GAIT DISTURBANCE [None]
  - HAEMORRHAGE [None]
  - TENDONITIS [None]
  - UPPER RESPIRATORY FUNGAL INFECTION [None]
  - BODY HEIGHT DECREASED [None]
  - BALANCE DISORDER [None]
  - FACE INJURY [None]
